FAERS Safety Report 6752316-1 (Version None)
Quarter: 2010Q2

REPORT INFORMATION
  Report Type: 
  Country: None (occurrence: None)
  Receive Date: 20100601
  Receipt Date: 20100601
  Transmission Date: 20101027
  Serious: Yes (Life-Threatening, Other)
  Sender: FDA-Public Use
  Company Number: None

PATIENT
  Age: 19 Year
  Sex: Female
  Weight: 56.6996 kg

DRUGS (2)
  1. JOLESSSA EXTENDED CYCLE 30 MCG-0.15 MG .....? [Suspect]
     Indication: ABDOMINAL PAIN
     Dosage: 30 MCG-0.15 1X DAILY OTIC
     Route: 001
     Dates: start: 20100301, end: 20100527
  2. JOLESSSA EXTENDED CYCLE 30 MCG-0.15 MG .....? [Suspect]
     Indication: MENSTRUATION IRREGULAR
     Dosage: 30 MCG-0.15 1X DAILY OTIC
     Route: 001
     Dates: start: 20100301, end: 20100527

REACTIONS (17)
  - ABNORMAL BEHAVIOUR [None]
  - ACTIVITIES OF DAILY LIVING IMPAIRED [None]
  - CONFUSIONAL STATE [None]
  - CRYING [None]
  - DIZZINESS [None]
  - FATIGUE [None]
  - FEELING ABNORMAL [None]
  - HAEMORRHAGE [None]
  - MENORRHAGIA [None]
  - MOOD SWINGS [None]
  - MUSCLE SPASMS [None]
  - NERVOUSNESS [None]
  - PANIC ATTACK [None]
  - PARAESTHESIA [None]
  - QUALITY OF LIFE DECREASED [None]
  - SOMNOLENCE [None]
  - VAGINAL HAEMORRHAGE [None]
